FAERS Safety Report 21745090 (Version 1)
Quarter: 2022Q4

REPORT INFORMATION
  Report Type: Spontaneous
  Country: CN (occurrence: CN)
  Receive Date: 20221219
  Receipt Date: 20221219
  Transmission Date: 20230113
  Serious: Yes (Death, Hospitalization)
  Sender: FDA-Public Use
  Company Number: CN-JNJFOC-20221230049

PATIENT

DRUGS (4)
  1. INVOKANA [Suspect]
     Active Substance: CANAGLIFLOZIN
     Indication: Diabetes mellitus
     Route: 048
  2. INVOKANA [Suspect]
     Active Substance: CANAGLIFLOZIN
     Indication: Cardiac failure
  3. INVOKANA [Suspect]
     Active Substance: CANAGLIFLOZIN
     Indication: Chronic kidney disease
  4. INVOKANA [Suspect]
     Active Substance: CANAGLIFLOZIN
     Indication: Weight control

REACTIONS (1)
  - Nephropathy toxic [Fatal]
